FAERS Safety Report 13308014 (Version 1)
Quarter: 2017Q1

REPORT INFORMATION
  Report Type: Report from Study
  Country: US (occurrence: US)
  Receive Date: 20170308
  Receipt Date: 20170308
  Transmission Date: 20170428
  Serious: No
  Sender: FDA-Public Use
  Company Number: US-AMGEN-USASL2016065254

PATIENT
  Age: 76 Year
  Sex: Female

DRUGS (1)
  1. SENSIPAR [Suspect]
     Active Substance: CINACALCET HYDROCHLORIDE
     Indication: HYPERPARATHYROIDISM SECONDARY
     Dosage: 30 MG, QD
     Route: 048

REACTIONS (8)
  - Fall [Unknown]
  - Hypertension [Unknown]
  - Rehabilitation therapy [Unknown]
  - Muscular weakness [Unknown]
  - Breast discharge [Unknown]
  - Weight decreased [Unknown]
  - Pruritus [Unknown]
  - Blood phosphorus increased [Unknown]
